FAERS Safety Report 6148983-6 (Version None)
Quarter: 2009Q2

REPORT INFORMATION
  Report Type: 
  Country: None (occurrence: None)
  Receive Date: 20090408
  Receipt Date: 20090327
  Transmission Date: 20091009
  Serious: Yes (Other)
  Sender: FDA-Public Use
  Company Number: US-PFIZER INC-2009191843

PATIENT
  Sex: Female
  Weight: 47.166 kg

DRUGS (9)
  1. CHANTIX [Suspect]
     Indication: SMOKING CESSATION THERAPY
     Dosage: UNK
     Route: 048
     Dates: start: 20090323
  2. METHADONE [Concomitant]
     Indication: ARTHRITIS
  3. SKELAXIN [Concomitant]
     Indication: NEUROPATHY PERIPHERAL
  4. PANTOPRAZOLE [Concomitant]
     Indication: GASTROOESOPHAGEAL REFLUX DISEASE
  5. METHOTREXATE [Concomitant]
     Indication: NEOPLASM MALIGNANT
  6. LISINOPRIL [Concomitant]
     Indication: HYPERTENSION
  7. LEXAPRO [Concomitant]
  8. ACETYLSALICYLIC ACID [Concomitant]
  9. FOLIC ACID [Concomitant]

REACTIONS (3)
  - LIP SWELLING [None]
  - OEDEMA MOUTH [None]
  - SPEECH DISORDER [None]
